FAERS Safety Report 14713296 (Version 1)
Quarter: 2018Q2

REPORT INFORMATION
  Report Type: Spontaneous
  Country: FR (occurrence: FR)
  Receive Date: 20180404
  Receipt Date: 20180404
  Transmission Date: 20180711
  Serious: Yes (Other)
  Sender: FDA-Public Use
  Company Number: FR-MERCK KGAA-2045079

PATIENT
  Age: 71 Year
  Sex: Female

DRUGS (1)
  1. NOVOTHYROX [Suspect]
     Active Substance: LEVOTHYROXINE SODIUM
     Indication: AUTOIMMUNE THYROIDITIS

REACTIONS (12)
  - Hyperthyroidism [Recovered/Resolved]
  - International normalised ratio abnormal [Recovering/Resolving]
  - Headache [Recovering/Resolving]
  - Fatigue [Recovering/Resolving]
  - Palpitations [Not Recovered/Not Resolved]
  - Asthenia [Recovering/Resolving]
  - Hypertension [Recovering/Resolving]
  - Gastrointestinal motility disorder [Recovering/Resolving]
  - Vertigo [Recovering/Resolving]
  - Vitamin D deficiency [Recovering/Resolving]
  - Calcium deficiency [Recovering/Resolving]
  - General physical health deterioration [Recovering/Resolving]

NARRATIVE: CASE EVENT DATE: 2017
